FAERS Safety Report 17912019 (Version 1)
Quarter: 2020Q2

REPORT INFORMATION
  Report Type: Spontaneous
  Country: BR (occurrence: BR)
  Receive Date: 20200618
  Receipt Date: 20200618
  Transmission Date: 20200714
  Serious: Yes (Other)
  Sender: FDA-Public Use
  Company Number: BR-TEVA-2020-BR-1790581

PATIENT
  Sex: Female

DRUGS (1)
  1. ACTONEL CHRONOS [Suspect]
     Active Substance: RISEDRONATE SODIUM
     Route: 065
     Dates: start: 2018, end: 202003

REACTIONS (3)
  - Chest pain [Unknown]
  - Transplant [Unknown]
  - Feeling abnormal [Unknown]

NARRATIVE: CASE EVENT DATE: 202003
